FAERS Safety Report 15682625 (Version 2)
Quarter: 2018Q4

REPORT INFORMATION
  Report Type: Spontaneous
  Country: CA (occurrence: CA)
  Receive Date: 20181203
  Receipt Date: 20181210
  Transmission Date: 20190205
  Serious: Yes (Other)
  Sender: FDA-Public Use
  Company Number: CA-GILEAD-2018-0369774

PATIENT
  Age: 63 Year
  Sex: Male

DRUGS (2)
  1. AMBRISENTAN [Suspect]
     Active Substance: AMBRISENTAN
     Indication: PULMONARY ARTERIAL HYPERTENSION
     Dosage: 5 MG, QD
     Route: 005
     Dates: start: 20180926, end: 20181129
  2. ADCIRCA [Suspect]
     Active Substance: TADALAFIL
     Indication: PULMONARY ARTERIAL HYPERTENSION
     Dosage: 40 MG, UNK
     Route: 065
     Dates: start: 20150720

REACTIONS (8)
  - Distractibility [Unknown]
  - Haemoglobin decreased [Not Recovered/Not Resolved]
  - Right ventricular failure [Unknown]
  - Adverse drug reaction [Unknown]
  - Confusional state [Unknown]
  - Pulmonary hypertension [Unknown]
  - Abdominal pain [Unknown]
  - Oedema peripheral [Unknown]
